FAERS Safety Report 8295149-X (Version None)
Quarter: 2012Q2

REPORT INFORMATION
  Report Type: 
  Country: None (occurrence: None)
  Receive Date: 20120416
  Receipt Date: 20120403
  Transmission Date: 20120825
  Serious: Yes (Other)
  Sender: FDA-Public Use
  Company Number: KAD201203-000178

PATIENT
  Age: 57 Year
  Sex: Female
  Weight: 189 kg

DRUGS (10)
  1. VICTRELIS [Suspect]
     Indication: HEPATITIS C
     Dosage: 200 MG 4 TABS THREE TIMES A DAY
  2. ZOLPIDEM [Concomitant]
  3. OMEPRAZOLE [Concomitant]
  4. MILK THISTLE [Concomitant]
  5. PEGASYS [Suspect]
     Indication: HEPATITIS C
     Dosage: 180 MCG ONCE A WEEK
  6. CITALOPRAM HYDROBROMIDE [Concomitant]
  7. PEG-INTRON [Suspect]
     Indication: HEPATITIS C
     Dosage: 180 MCG ONCE A
  8. ALLEGRA-D 12 HOUR [Concomitant]
  9. RIBAVIRIN [Suspect]
     Indication: HEPATITIS C
     Dosage: 1200 MG/DAY
     Dates: start: 20110904
  10. ECHINACEA [Concomitant]

REACTIONS (30)
  - CONTUSION [None]
  - CONSTIPATION [None]
  - IMPAIRED HEALING [None]
  - NIGHT SWEATS [None]
  - DIZZINESS [None]
  - LACERATION [None]
  - WHEEZING [None]
  - WHITE BLOOD CELL COUNT DECREASED [None]
  - RED BLOOD CELL COUNT DECREASED [None]
  - INCORRECT DOSE ADMINISTERED [None]
  - CHANGE OF BOWEL HABIT [None]
  - INSOMNIA [None]
  - JOINT STIFFNESS [None]
  - ABDOMINAL PAIN [None]
  - DIARRHOEA [None]
  - PYREXIA [None]
  - ARTHRALGIA [None]
  - HAEMORRHOIDS [None]
  - HAEMATOCRIT DECREASED [None]
  - MELAENA [None]
  - DYSPNOEA [None]
  - FATIGUE [None]
  - ASTHENIA [None]
  - CHILLS [None]
  - HEPATIC STEATOSIS [None]
  - LABORATORY TEST ABNORMAL [None]
  - HEPATOMEGALY [None]
  - HYPERHIDROSIS [None]
  - HAEMOGLOBIN DECREASED [None]
  - HEPATIC FIBROSIS [None]
